FAERS Safety Report 21633075 (Version 1)
Quarter: 2022Q4

REPORT INFORMATION
  Report Type: Spontaneous
  Country: IN (occurrence: IN)
  Receive Date: 20221123
  Receipt Date: 20221123
  Transmission Date: 20230112
  Serious: Yes (Death, Hospitalization, Other)
  Sender: FDA-Public Use
  Company Number: IN-SA-SAC20221123000430

PATIENT
  Age: 42 Year
  Sex: Female
  Weight: 72 kg

DRUGS (4)
  1. THYMOGLOBULIN [Suspect]
     Active Substance: LAPINE T-LYMPHOCYTE IMMUNE GLOBULIN
     Indication: Myelodysplastic syndrome
     Dosage: 175 MG/200MG
     Route: 042
     Dates: start: 20221108, end: 20221109
  2. VENETOCLAX [Concomitant]
     Active Substance: VENETOCLAX
     Dosage: UNK
  3. FLUDARABINE [Concomitant]
     Active Substance: FLUDARABINE PHOSPHATE
     Dosage: UNK
  4. MELPHALAN [Concomitant]
     Active Substance: MELPHALAN
     Dosage: UNK

REACTIONS (7)
  - Unrelated donor bone marrow transplantation therapy [Fatal]
  - Dyspnoea [Fatal]
  - Capillary leak syndrome [Fatal]
  - Shock [Fatal]
  - Lung infiltration [Fatal]
  - Lung disorder [Fatal]
  - Myelodysplastic syndrome [Fatal]
